FAERS Safety Report 12628601 (Version 1)
Quarter: 2016Q3

REPORT INFORMATION
  Report Type: Spontaneous
  Country: US (occurrence: US)
  Receive Date: 20160808
  Receipt Date: 20160808
  Transmission Date: 20161109
  Serious: No
  Sender: FDA-Public Use
  Company Number: US-JAZZ-2016-US-004301

PATIENT
  Age: 41 Year
  Sex: Female
  Weight: 139.68 kg

DRUGS (22)
  1. KLOR-CON [Concomitant]
     Active Substance: POTASSIUM CHLORIDE
  2. METFORMIN HCL [Concomitant]
     Active Substance: METFORMIN HYDROCHLORIDE
  3. ARMOUR THYROID [Concomitant]
     Active Substance: THYROID, PORCINE
  4. LYRICA [Concomitant]
     Active Substance: PREGABALIN
  5. CYMBALTA [Concomitant]
     Active Substance: DULOXETINE HYDROCHLORIDE
  6. VALSARTAN. [Concomitant]
     Active Substance: VALSARTAN
  7. VASCEPA [Concomitant]
     Active Substance: ICOSAPENT ETHYL
  8. BENTYL [Concomitant]
     Active Substance: DICYCLOMINE HYDROCHLORIDE
  9. NAMENDA [Concomitant]
     Active Substance: MEMANTINE HYDROCHLORIDE
  10. PROVIGIL [Concomitant]
     Active Substance: MODAFINIL
     Indication: NARCOLEPSY
  11. TOPAMAX [Concomitant]
     Active Substance: TOPIRAMATE
  12. CHOLESTYRAMINE. [Concomitant]
     Active Substance: CHOLESTYRAMINE
     Indication: GALLBLADDER OPERATION
  13. DEPLIN [Concomitant]
     Active Substance: LEVOMEFOLATE CALCIUM
  14. LASIX [Concomitant]
     Active Substance: FUROSEMIDE
  15. TRAMADOL. [Concomitant]
     Active Substance: TRAMADOL
  16. XYREM [Suspect]
     Active Substance: SODIUM OXYBATE
     Indication: NARCOLEPSY
     Dosage: 3 G, BID
     Route: 048
     Dates: start: 201601, end: 2016
  17. XYREM [Suspect]
     Active Substance: SODIUM OXYBATE
     Dosage: 3 G, QD
     Route: 048
     Dates: start: 2016
  18. GUANFACINE. [Concomitant]
     Active Substance: GUANFACINE
  19. PREVACID [Concomitant]
     Active Substance: LANSOPRAZOLE
  20. DIAZEPAM. [Concomitant]
     Active Substance: DIAZEPAM
  21. COUMADIN [Concomitant]
     Active Substance: WARFARIN SODIUM
  22. DOXEPIN [Concomitant]
     Active Substance: DOXEPIN

REACTIONS (4)
  - Somnolence [Recovered/Resolved]
  - Feeling abnormal [Recovered/Resolved]
  - Nervousness [Recovered/Resolved]
  - Nausea [Recovered/Resolved]

NARRATIVE: CASE EVENT DATE: 201602
